FAERS Safety Report 16929379 (Version 1)
Quarter: 2019Q4

REPORT INFORMATION
  Report Type: Spontaneous
  Country: US (occurrence: US)
  Receive Date: 20190826
  Receipt Date: 20190826
  Transmission Date: 20200122
  Serious: No
  Sender: FDA-Public Use
  Company Number: None

PATIENT
  Age: 15 Year
  Sex: Male

DRUGS (1)
  1. TEMOZOLOMIDE  140MG CAP [Suspect]
     Active Substance: TEMOZOLOMIDE
     Dosage: ?          OTHER FREQUENCY:OTHER;?
     Route: 048
     Dates: start: 201904

REACTIONS (4)
  - Skin discolouration [None]
  - Erythema [None]
  - Pruritus [None]
  - Dry skin [None]

NARRATIVE: CASE EVENT DATE: 20190826
